FAERS Safety Report 9528688 (Version 1)
Quarter: 2013Q3

REPORT INFORMATION
  Report Type: Spontaneous
  Country: US (occurrence: US)
  Receive Date: 20130917
  Receipt Date: 20130917
  Transmission Date: 20140515
  Serious: No
  Sender: FDA-Public Use
  Company Number: US-BAYER-2013-111835

PATIENT
  Age: 31 Year
  Sex: Male
  Weight: 98 kg

DRUGS (3)
  1. MIDOL EXTENDED RELIEF CAPLET [Suspect]
     Dosage: 2 DF, PRN
     Route: 048
     Dates: start: 2012
  2. VALIUM [Concomitant]
  3. AMBIEN [Concomitant]

REACTIONS (1)
  - Therapeutic response unexpected [None]
